FAERS Safety Report 5733072-2 (Version None)
Quarter: 2008Q2

REPORT INFORMATION
  Report Type: 
  Country: None (occurrence: None)
  Receive Date: 20080509
  Receipt Date: 20080502
  Transmission Date: 20081010
  Serious: Yes (Hospitalization)
  Sender: FDA-Public Use
  Company Number: NO-BRISTOL-MYERS SQUIBB COMPANY-14173488

PATIENT
  Age: 68 Year
  Sex: Female

DRUGS (5)
  1. KENACORT-T [Suspect]
     Indication: PERIARTHRITIS
     Dosage: 1 INJECTION 20080407 AND 1 INJECTION 20080415.
     Route: 014
     Dates: start: 20080407, end: 20080415
  2. PREDNISOLONE [Suspect]
     Indication: CHRONIC OBSTRUCTIVE PULMONARY DISEASE
     Route: 048
     Dates: start: 20080407, end: 20080413
  3. SERETIDE [Concomitant]
     Indication: CHRONIC OBSTRUCTIVE PULMONARY DISEASE
     Route: 055
     Dates: start: 20061222
  4. DOXYLIN [Concomitant]
     Route: 048
  5. XALACOM [Concomitant]
     Indication: INTRAOCULAR PRESSURE INCREASED
     Route: 047
     Dates: start: 20080311

REACTIONS (2)
  - ANGLE CLOSURE GLAUCOMA [None]
  - BLINDNESS UNILATERAL [None]
